FAERS Safety Report 4270916-8 (Version None)
Quarter: 2004Q1

REPORT INFORMATION
  Report Type: 
  Country: None (occurrence: None)
  Receive Date: 20040113
  Receipt Date: 20040105
  Transmission Date: 20041129
  Serious: Yes (Other)
  Sender: FDA-Public Use
  Company Number: PERI00204000076

PATIENT
  Age: 74 Year
  Sex: Female

DRUGS (5)
  1. COVERSYL (PERINDOPRIL) [Suspect]
     Indication: HYPERTENSION
     Dosage: 4 MG QD PO
     Route: 048
     Dates: end: 20030901
  2. BENDROFLUAZIDE (BENDROFLUAZIDE) [Concomitant]
  3. LATANOPROST [Concomitant]
  4. LACIDIPINE (LACIDIPINE) [Concomitant]
  5. ACETYLSALICYLIC ACID SRT [Concomitant]

REACTIONS (1)
  - PEMPHIGOID [None]
